FAERS Safety Report 10176857 (Version 1)
Quarter: 2014Q2

REPORT INFORMATION
  Report Type: Spontaneous
  Country: US (occurrence: US)
  Receive Date: 20140516
  Receipt Date: 20140516
  Transmission Date: 20141212
  Serious: Yes (Other)
  Sender: FDA-Public Use
  Company Number: US-ASTRAZENECA-2014SE32371

PATIENT
  Age: 83 Year
  Sex: Male

DRUGS (5)
  1. METOPROLOL [Suspect]
     Route: 048
  2. BRILINTA [Suspect]
     Indication: THROMBOSIS
     Route: 048
  3. BABY ASPIRIN [Concomitant]
  4. NITRO [Concomitant]
  5. VITAMINS [Concomitant]

REACTIONS (2)
  - Thrombosis [Unknown]
  - Intentional product misuse [Unknown]
